FAERS Safety Report 20140118 (Version 2)
Quarter: 2021Q4

REPORT INFORMATION
  Report Type: Spontaneous
  Country: US (occurrence: US)
  Receive Date: 20211202
  Receipt Date: 20211215
  Transmission Date: 20220303
  Serious: No
  Sender: FDA-Public Use
  Company Number: US-VERTEX PHARMACEUTICALS-2021-018767

PATIENT
  Age: 19 Year
  Sex: Male
  Weight: 61 kg

DRUGS (13)
  1. TRIKAFTA [Suspect]
     Active Substance: ELEXACAFTOR\IVACAFTOR\TEZACAFTOR
     Indication: Cystic fibrosis
     Dosage: 2 ORANGE TAB AM AND 1 BLUE TAB PM
     Route: 048
     Dates: start: 20210118, end: 20210630
  2. TRIKAFTA [Suspect]
     Active Substance: ELEXACAFTOR\IVACAFTOR\TEZACAFTOR
     Dosage: FREQ UNK
     Route: 048
     Dates: start: 2021
  3. BACLOFEN [Concomitant]
     Active Substance: BACLOFEN
     Indication: Muscle spasms
     Dosage: TAKE 1 TAB TWICE, IF NEEDED
     Route: 048
     Dates: start: 20210407
  4. CIPROFLOXACIN [Concomitant]
     Active Substance: CIPROFLOXACIN
     Dosage: TAKE 1 TAB
     Route: 048
     Dates: start: 20210407, end: 20210417
  5. GABAPENTIN [Concomitant]
     Active Substance: GABAPENTIN
     Dosage: TAKE 1 CAPS AT 8AM AND 1 BY 4PM , 2 CAPS AT 9PM
     Route: 048
     Dates: start: 20210407
  6. ZENPEP [Concomitant]
     Active Substance: PANCRELIPASE AMYLASE\PANCRELIPASE LIPASE\PANCRELIPASE PROTEASE
     Dosage: 20,000-63000-84000UNIT, TAKE 5-6 CAPS 3 TIMES
     Route: 048
     Dates: start: 20201105
  7. ACETAMINOPHEN [Concomitant]
     Active Substance: ACETAMINOPHEN
  8. ABILIFY [Concomitant]
     Active Substance: ARIPIPRAZOLE
     Dosage: UNK
     Dates: start: 20210226
  9. FOLIC ACID [Concomitant]
     Active Substance: FOLIC ACID
     Dosage: 200MCG-1000-10MG, TAKE1 CAPS
     Route: 048
     Dates: start: 20201102, end: 20210413
  10. FLONASE [Concomitant]
     Active Substance: FLUTICASONE PROPIONATE
     Indication: Rhinitis
     Dosage: ADMINISTER 1SPRAY INTO EACH NOSTRIL 1TIME EACH DAY
     Dates: start: 20200918, end: 20210503
  11. XOPENEX [Concomitant]
     Active Substance: LEVALBUTEROL HYDROCHLORIDE
     Dosage: INHALE2 PUFFS EVERY 4HR
     Dates: start: 20210215
  12. POTASSIUM CITRATE [Concomitant]
     Active Substance: POTASSIUM CITRATE
     Dosage: 10MEQ(1080MG)CR TAB, TAKE 2 TABS THRICE
     Route: 048
     Dates: start: 20210317, end: 20210416
  13. TRETINOIN [Concomitant]
     Active Substance: TRETINOIN
     Dosage: UNK
     Dates: start: 20210122

REACTIONS (1)
  - COVID-19 [Recovered/Resolved]

NARRATIVE: CASE EVENT DATE: 20210212
